FAERS Safety Report 9940673 (Version 1)
Quarter: 2014Q1

REPORT INFORMATION
  Report Type: Spontaneous
  Country: AU (occurrence: AU)
  Receive Date: 20140303
  Receipt Date: 20140303
  Transmission Date: 20141002
  Serious: Yes (Death)
  Sender: FDA-Public Use
  Company Number: AU-B.I. PHARMACEUTICALS,INC./RIDGEFIELD-2014-BI-08631GD

PATIENT
  Age: 6 Year
  Sex: Male
  Weight: 30 kg

DRUGS (5)
  1. CLONIDINE [Suspect]
     Indication: PRODUCT USED FOR UNKNOWN INDICATION
     Route: 065
  2. SEVOFLURANE [Suspect]
     Indication: INDUCTION AND MAINTENANCE OF ANAESTHESIA
     Route: 055
  3. FENTANYL [Suspect]
     Indication: MAINTENANCE OF ANAESTHESIA
     Route: 065
  4. HYDROCORTISONE [Suspect]
     Indication: PRODUCT USED FOR UNKNOWN INDICATION
     Route: 065
  5. CEPHAZOLIN [Suspect]
     Indication: PRODUCT USED FOR UNKNOWN INDICATION
     Route: 065

REACTIONS (5)
  - Rhabdomyolysis [Fatal]
  - Hyperkalaemia [Fatal]
  - Bradycardia [Fatal]
  - Electrocardiogram T wave peaked [Fatal]
  - Ventricular failure [Fatal]
